FAERS Safety Report 4991210-3 (Version None)
Quarter: 2006Q2

REPORT INFORMATION
  Report Type: 
  Country: None (occurrence: None)
  Receive Date: 20060504
  Receipt Date: 20060109
  Transmission Date: 20061013
  Serious: Yes (Hospitalization)
  Sender: FDA-Public Use
  Company Number: US-ROCHE-431646

PATIENT
  Age: 49 Year
  Sex: Male

DRUGS (3)
  1. CELLCEPT [Suspect]
     Indication: MYASTHENIA GRAVIS
     Route: 048
     Dates: start: 20000525, end: 20031215
  2. CELLCEPT [Suspect]
     Route: 048
     Dates: start: 20040114, end: 20040121
  3. CELLCEPT [Suspect]
     Route: 048
     Dates: start: 20040121

REACTIONS (22)
  - ABASIA [None]
  - ANAEMIA [None]
  - ASCITES [None]
  - CLOSTRIDIAL INFECTION [None]
  - CYTOMEGALOVIRUS INFECTION [None]
  - DECUBITUS ULCER [None]
  - DYSPHAGIA [None]
  - GENERALISED OEDEMA [None]
  - HEADACHE [None]
  - HEPATIC STEATOSIS [None]
  - HEPATITIS [None]
  - HYPERTENSION [None]
  - MENINGITIS [None]
  - MULTI-ORGAN FAILURE [None]
  - OCCULT BLOOD POSITIVE [None]
  - ORAL CANDIDIASIS [None]
  - ORGAN FAILURE [None]
  - PNEUMONIA [None]
  - RESPIRATORY FAILURE [None]
  - SEPTIC SHOCK [None]
  - STAPHYLOCOCCAL INFECTION [None]
  - VENTRICULAR HYPERTROPHY [None]
